FAERS Safety Report 4837011-8 (Version None)
Quarter: 2005Q4

REPORT INFORMATION
  Report Type: 
  Country: None (occurrence: None)
  Receive Date: 20051123
  Receipt Date: 20051117
  Transmission Date: 20060501
  Serious: Yes (Death, Hospitalization)
  Sender: FDA-Public Use
  Company Number: FR-ABBOTT-05P-056-0317597-00

PATIENT
  Age: 76 Year
  Sex: Female

DRUGS (4)
  1. SOTALOL [Suspect]
     Indication: TACHYARRHYTHMIA
     Route: 048
     Dates: start: 20050415, end: 20051012
  2. CANDESARTAN CILEXETIL [Suspect]
     Indication: HYPERTENSION
     Route: 048
     Dates: start: 20050415, end: 20051012
  3. ACETAMINOPHEN [Suspect]
     Indication: OSTEOARTHRITIS
     Route: 048
     Dates: start: 20050815, end: 20051012
  4. ACECLOFENAC [Suspect]
     Indication: OSTEOARTHRITIS
     Route: 048
     Dates: start: 20050815, end: 20051012

REACTIONS (11)
  - CHOLESTASIS [None]
  - FAECES DISCOLOURED [None]
  - HEPATIC ENZYME INCREASED [None]
  - HEPATIC FAILURE [None]
  - HEPATITIS CHOLESTATIC [None]
  - LIVER DISORDER [None]
  - LYMPHADENOPATHY [None]
  - NAUSEA [None]
  - NEUTROPENIA [None]
  - OSTEOARTHRITIS [None]
  - VOMITING [None]
